FAERS Safety Report 5207612-6 (Version None)
Quarter: 2007Q1

REPORT INFORMATION
  Report Type: 
  Country: None (occurrence: None)
  Receive Date: 20070112
  Receipt Date: 20070102
  Transmission Date: 20070707
  Serious: Yes (Hospitalization)
  Sender: FDA-Public Use
  Company Number: DE-PFIZER INC-2005041516

PATIENT
  Age: 81 Year
  Sex: Female

DRUGS (9)
  1. ZELDOX (CAPSULES) [Suspect]
     Indication: SCHIZOPHRENIA, PARANOID TYPE
     Dosage: DAILY DOSE:40MG-FREQ:UNKNOWN
     Route: 048
     Dates: start: 20040728, end: 20040730
  2. PROMETHAZINE [Suspect]
     Dosage: DAILY DOSE:150MG-FREQ:UNKNOWN
     Route: 048
  3. OXAZEPAM [Suspect]
     Dosage: DAILY DOSE:15MG-FREQ:UNKNOWN
     Route: 048
  4. REMERGIL [Suspect]
     Dosage: DAILY DOSE:45MG-FREQ:UNKNOWN
     Route: 048
  5. CIPRAMIL [Suspect]
     Dosage: DAILY DOSE:40MG
     Route: 048
  6. ISMO [Concomitant]
     Route: 048
  7. PANTOZOL [Concomitant]
     Route: 048
  8. MOLSIDOMINE [Concomitant]
     Route: 048
  9. DIMETICONE [Concomitant]
     Route: 048
     Dates: start: 20040722, end: 20040902

REACTIONS (1)
  - HYPOTONIA [None]
